FAERS Safety Report 6719138-9 (Version None)
Quarter: 2010Q2

REPORT INFORMATION
  Report Type: 
  Country: None (occurrence: None)
  Receive Date: 20100507
  Receipt Date: 20091209
  Transmission Date: 20101027
  Serious: Yes (Other)
  Sender: FDA-Public Use
  Company Number: 08-001409

PATIENT
  Age: 79 Year
  Sex: Female

DRUGS (1)
  1. TACLONEX [Suspect]
     Indication: PSORIASIS
     Dosage: 1 IN 1 D, TOPICAL
     Route: 061
     Dates: start: 20080201, end: 20080101

REACTIONS (2)
  - NEUROPATHY PERIPHERAL [None]
  - OFF LABEL USE [None]
